FAERS Safety Report 7401988-7 (Version None)
Quarter: 2011Q2

REPORT INFORMATION
  Report Type: 
  Country: None (occurrence: None)
  Receive Date: 20110408
  Receipt Date: 20110405
  Transmission Date: 20111010
  Serious: Yes (Other)
  Sender: FDA-Public Use
  Company Number: US-PFIZER INC-2011040151

PATIENT
  Sex: Male
  Weight: 62.585 kg

DRUGS (4)
  1. LEXAPRO [Concomitant]
     Dosage: 10 MG, 1X/DAY
     Dates: start: 20090601
  2. CHANTIX [Suspect]
     Indication: SMOKING CESSATION THERAPY
     Dosage: 0.5 MG, 1X/DAY
     Route: 048
     Dates: start: 20110201, end: 20110210
  3. CLOBETASOL [Concomitant]
     Dosage: UNK
     Dates: start: 20091116
  4. TYLENOL W/ CODEINE NO. 3 [Concomitant]
     Dosage: 1-2 EVERY 4 HOURS
     Dates: start: 20091116

REACTIONS (6)
  - EYE SWELLING [None]
  - URTICARIA [None]
  - EYE PRURITUS [None]
  - RASH [None]
  - OCULAR HYPERAEMIA [None]
  - ACTIVITIES OF DAILY LIVING IMPAIRED [None]
